FAERS Safety Report 5446662-1 (Version None)
Quarter: 2007Q3

REPORT INFORMATION
  Report Type: 
  Country: None (occurrence: None)
  Receive Date: 20070907
  Receipt Date: 20070829
  Transmission Date: 20080115
  Serious: Yes (Hospitalization, Other)
  Sender: FDA-Public Use
  Company Number: BR-SHR-BR-2007-025169

PATIENT
  Age: 21 Year
  Sex: Female

DRUGS (3)
  1. BETAFERON [Suspect]
     Indication: PROGRESSIVE MULTIPLE SCLEROSIS
     Dosage: 9.6 MIU, EVERY 2D
     Route: 058
     Dates: start: 20070401
  2. TYLENOL (CAPLET) [Concomitant]
     Dosage: UNK, UNK
  3. PAROXETINE [Concomitant]
     Dosage: 20 MG, 1X/DAY

REACTIONS (6)
  - ANOREXIA [None]
  - FLUID RETENTION [None]
  - HEADACHE [None]
  - MULTIPLE SCLEROSIS RELAPSE [None]
  - PANIC REACTION [None]
  - SYNCOPE [None]
